FAERS Safety Report 14275429 (Version 1)
Quarter: 2017Q4

REPORT INFORMATION
  Report Type: Spontaneous
  Country: JP (occurrence: JP)
  Receive Date: 20171211
  Receipt Date: 20171211
  Transmission Date: 20180321
  Serious: Yes (Hospitalization)
  Sender: FDA-Public Use
  Company Number: JP-OTSUKA-JP-2014-18238

PATIENT
  Age: 77 Year
  Sex: Male

DRUGS (3)
  1. YOKUKANSAN [Concomitant]
     Active Substance: HERBALS
     Indication: PRODUCT USED FOR UNKNOWN INDICATION
     Dosage: 5 G, QD
     Route: 048
     Dates: start: 20140912
  2. ABILIFY [Suspect]
     Active Substance: ARIPIPRAZOLE
     Indication: DEMENTIA WITH LEWY BODIES
     Dosage: 3 MG, QD
     Route: 048
     Dates: start: 20140912, end: 20140918
  3. ABILIFY [Suspect]
     Active Substance: ARIPIPRAZOLE
     Indication: OFF LABEL USE

REACTIONS (3)
  - Fall [Unknown]
  - Off label use [Unknown]
  - Parkinsonism [Recovering/Resolving]

NARRATIVE: CASE EVENT DATE: 20140918
